FAERS Safety Report 7561881-6 (Version None)
Quarter: 2011Q2

REPORT INFORMATION
  Report Type: 
  Country: None (occurrence: None)
  Receive Date: 20110621
  Receipt Date: 20110608
  Transmission Date: 20111010
  Serious: Yes (Other)
  Sender: FDA-Public Use
  Company Number: PHHY2011BR22470

PATIENT
  Sex: Male

DRUGS (1)
  1. CYCLOSPORINE [Suspect]
     Indication: MUSCULAR WEAKNESS

REACTIONS (3)
  - GAIT DISTURBANCE [None]
  - RENAL PAIN [None]
  - DRUG INEFFECTIVE [None]
